FAERS Safety Report 9240192 (Version 1)
Quarter: 2013Q1

REPORT INFORMATION
  Report Type: Spontaneous
  Country: US (occurrence: None)
  Receive Date: 20121119
  Receipt Date: 20121119
  Transmission Date: 20140127
  Serious: Yes (Hospitalization, Other)
  Sender: FDA-Public Use
  Company Number: 069306

PATIENT
  Sex: Female
  Weight: 90.7 kg

DRUGS (5)
  1. LACOSAMIDE [Suspect]
     Indication: GRAND MAL CONVULSION
     Dosage: TO CONTINUING?
  2. OXCARBAZEPINE [Concomitant]
  3. DESVENLAFAXIN [Concomitant]
  4. LORAZEPAM [Concomitant]
  5. BONIVA [Concomitant]

REACTIONS (3)
  - Convulsion [None]
  - Head injury [None]
  - Overdose [None]
